FAERS Safety Report 5769868-0 (Version None)
Quarter: 2008Q2

REPORT INFORMATION
  Report Type: 
  Country: None (occurrence: None)
  Receive Date: 20080613
  Receipt Date: 20080414
  Transmission Date: 20081010
  Serious: No
  Sender: FDA-Public Use
  Company Number: US-ABBOTT-08P-163-0446926-00

PATIENT
  Sex: Male
  Weight: 56.75 kg

DRUGS (4)
  1. HUMIRA [Suspect]
     Indication: CROHN'S DISEASE
     Dates: start: 20070901
  2. VENLAFAXINE HCL [Concomitant]
     Indication: ANXIETY
     Route: 048
  3. MESALAMINE [Concomitant]
     Indication: CROHN'S DISEASE
     Dosage: TAKE TWO TABLETS TWICE A DAY
     Route: 048
  4. SIMVASTATIN [Concomitant]
     Indication: BLOOD CHOLESTEROL INCREASED
     Dosage: ONCE EVERY OTHER DAY
     Route: 048

REACTIONS (8)
  - ANOREXIA [None]
  - BODY TEMPERATURE FLUCTUATION [None]
  - CHILLS [None]
  - FATIGUE [None]
  - HYPERHIDROSIS [None]
  - PYREXIA [None]
  - RASH [None]
  - WHITE BLOOD CELL COUNT INCREASED [None]
